FAERS Safety Report 25325163 (Version 2)
Quarter: 2025Q3

REPORT INFORMATION
  Report Type: Spontaneous
  Country: EU (occurrence: EU)
  Receive Date: 20250516
  Receipt Date: 20250801
  Transmission Date: 20251020
  Serious: Yes (Hospitalization)
  Sender: ALEXION PHARMACEUTICALS
  Company Number: EU-SA-2025SA135671

PATIENT
  Age: 2 Month
  Sex: Male

DRUGS (2)
  1. NIRSEVIMAB [Suspect]
     Active Substance: NIRSEVIMAB
  2. VIGANTOL [Concomitant]
     Indication: Supplementation therapy
     Dosage: 1 DROP/DAY (667/ IU/DAY)
     Route: 065

REACTIONS (1)
  - Respiratory syncytial virus infection [Recovered/Resolved]

NARRATIVE: CASE EVENT DATE: 20250315
